FAERS Safety Report 15278412 (Version 1)
Quarter: 2018Q3

REPORT INFORMATION
  Report Type: Spontaneous
  Country: ES (occurrence: ES)
  Receive Date: 20180814
  Receipt Date: 20180814
  Transmission Date: 20181010
  Serious: Yes (Hospitalization)
  Sender: FDA-Public Use
  Company Number: PHHY2018ES072084

PATIENT
  Age: 11 Year
  Sex: Male
  Weight: 50 kg

DRUGS (9)
  1. MYCOPHENOLATE MOFETIL. [Suspect]
     Active Substance: MYCOPHENOLATE MOFETIL
     Indication: PROPHYLAXIS AGAINST TRANSPLANT REJECTION
     Dosage: 700 MG, UNK
     Route: 048
     Dates: start: 20170601
  2. POSACONAZOL [Concomitant]
     Active Substance: POSACONAZOLE
     Indication: PROPHYLAXIS
     Dosage: 300 MG, UNK
     Route: 048
     Dates: start: 20170130
  3. HIDROCORTISONA [Concomitant]
     Active Substance: HYDROCORTISONE
     Indication: PROPHYLAXIS AGAINST TRANSPLANT REJECTION
     Dosage: 5 MEQ, UNK
     Route: 048
     Dates: start: 20171001
  4. PENTAMIDIN ISETHIONATE NMD [Concomitant]
     Indication: PRODUCT USED FOR UNKNOWN INDICATION
     Dosage: 200 MG, UNK
     Route: 042
     Dates: start: 20171106
  5. ZOVIRAX [Concomitant]
     Active Substance: ACYCLOVIR
     Indication: PROPHYLAXIS
     Dosage: 640 MG, UNK
     Route: 048
     Dates: start: 201701
  6. FOLIC ACID. [Concomitant]
     Active Substance: FOLIC ACID
     Indication: PROPHYLAXIS
     Dosage: 5 MG, UNK
     Route: 048
     Dates: start: 20170501
  7. OMEPRAZOL [Concomitant]
     Active Substance: OMEPRAZOLE
     Indication: PROPHYLAXIS
     Dosage: 20 MG, UNK
     Route: 048
     Dates: start: 20171001
  8. REVOLADE [Suspect]
     Active Substance: ELTROMBOPAG
     Indication: PANCYTOPENIA
     Dosage: 100 MG, UNK
     Route: 048
     Dates: start: 20170703
  9. COLECALCIFEROL [Concomitant]
     Active Substance: CHOLECALCIFEROL
     Indication: PROPHYLAXIS
     Dosage: 2000 IU, UNK
     Route: 048
     Dates: start: 20170508

REACTIONS (1)
  - Tonsillitis streptococcal [Recovered/Resolved]

NARRATIVE: CASE EVENT DATE: 20180107
